FAERS Safety Report 4963274-4 (Version None)
Quarter: 2006Q2

REPORT INFORMATION
  Report Type: 
  Country: None (occurrence: None)
  Receive Date: 20060405
  Receipt Date: 20060329
  Transmission Date: 20061013
  Serious: Yes (Other)
  Sender: FDA-Public Use
  Company Number: PHEH2006US04163

PATIENT
  Sex: Female

DRUGS (1)
  1. TRILEPTAL [Suspect]

REACTIONS (1)
  - VISUAL FIELD DEFECT [None]
